FAERS Safety Report 11330784 (Version 2)
Quarter: 2015Q3

REPORT INFORMATION
  Report Type: Spontaneous
  Country: US (occurrence: US)
  Receive Date: 20150803
  Receipt Date: 20150930
  Transmission Date: 20151125
  Serious: No
  Sender: FDA-Public Use
  Company Number: US-GLAXOSMITHKLINE-US2015GSK107133

PATIENT
  Sex: Male

DRUGS (4)
  1. VERAPAMIL [Concomitant]
     Active Substance: VERAPAMIL HYDROCHLORIDE
  2. IMITREX [Suspect]
     Active Substance: SUMATRIPTAN\SUMATRIPTAN SUCCINATE
     Indication: HEADACHE
     Dosage: UNK, U
  3. IMITREX SPRAY [Suspect]
     Active Substance: SUMATRIPTAN
     Indication: CLUSTER HEADACHE
  4. IMITREX SPRAY [Suspect]
     Active Substance: SUMATRIPTAN
     Indication: HEADACHE
     Dosage: UNK, U
     Route: 045

REACTIONS (6)
  - Depression [Unknown]
  - Wrong technique in product usage process [Unknown]
  - Secretion discharge [Unknown]
  - Therapeutic response decreased [Unknown]
  - Drug ineffective [Unknown]
  - Ill-defined disorder [Unknown]
